FAERS Safety Report 4536719-1 (Version None)
Quarter: 2004Q4

REPORT INFORMATION
  Report Type: 
  Country: None (occurrence: None)
  Receive Date: 20041220
  Receipt Date: 20041203
  Transmission Date: 20050328
  Serious: Yes (Hospitalization)
  Sender: FDA-Public Use
  Company Number: 2004BI001069

PATIENT
  Age: 69 Year
  Sex: Male

DRUGS (1)
  1. AMEVIVE [Suspect]
     Indication: PSORIASIS
     Dosage: 15 MG; QW; IM
     Route: 030
     Dates: start: 20041101

REACTIONS (4)
  - BLOOD DISORDER [None]
  - INFECTION [None]
  - JOINT SWELLING [None]
  - OEDEMA PERIPHERAL [None]
